FAERS Safety Report 7689064-X (Version None)
Quarter: 2011Q3

REPORT INFORMATION
  Report Type: 
  Country: None (occurrence: None)
  Receive Date: 20110817
  Receipt Date: 20110812
  Transmission Date: 20111222
  Serious: Yes (Hospitalization)
  Sender: FDA-Public Use
  Company Number: PR-MERCK-1108USA01696

PATIENT

DRUGS (1)
  1. INVANZ [Suspect]
     Indication: DIVERTICULITIS
     Route: 042

REACTIONS (1)
  - COLITIS [None]
